FAERS Safety Report 20014218 (Version 4)
Quarter: 2022Q2

REPORT INFORMATION
  Report Type: Spontaneous
  Country: US (occurrence: US)
  Receive Date: 20211029
  Receipt Date: 20220401
  Transmission Date: 20220721
  Serious: Yes (Other)
  Sender: FDA-Public Use
  Company Number: US-PFIZER INC-202100946173

PATIENT
  Age: 56 Year
  Sex: Female

DRUGS (1)
  1. XELJANZ XR [Suspect]
     Active Substance: TOFACITINIB CITRATE
     Indication: Rheumatoid arthritis
     Dosage: 11 MG, DAILY
     Route: 048
     Dates: start: 20210719

REACTIONS (22)
  - Systemic lupus erythematosus [Unknown]
  - Eye haemorrhage [Unknown]
  - Diarrhoea [Recovered/Resolved]
  - Arthralgia [Unknown]
  - Bone pain [Unknown]
  - Pain in extremity [Not Recovered/Not Resolved]
  - Sciatica [Not Recovered/Not Resolved]
  - Cough [Unknown]
  - Nasopharyngitis [Unknown]
  - Dizziness [Unknown]
  - Insomnia [Unknown]
  - Formication [Unknown]
  - Blister [Unknown]
  - Rash [Unknown]
  - Contusion [Unknown]
  - Swelling [Unknown]
  - Oropharyngeal pain [Unknown]
  - Alopecia [Unknown]
  - Asthenia [Unknown]
  - Inflammation [Recovering/Resolving]
  - Pain [Recovering/Resolving]
  - Osteoarthritis [Unknown]

NARRATIVE: CASE EVENT DATE: 20210101
